FAERS Safety Report 8106254-2 (Version None)
Quarter: 2012Q1

REPORT INFORMATION
  Report Type: 
  Country: None (occurrence: None)
  Receive Date: 20120130
  Receipt Date: 20120118
  Transmission Date: 20120608
  Serious: Yes (Other)
  Sender: FDA-Public Use
  Company Number: 1168999

PATIENT
  Age: 46 Year
  Sex: Female

DRUGS (1)
  1. VANCOMYCIN HYDROCHLORIDE [Suspect]
     Indication: RESPIRATORY FAILURE

REACTIONS (3)
  - DRUG HYPERSENSITIVITY [None]
  - TOXIC EPIDERMAL NECROLYSIS [None]
  - TERMINAL STATE [None]
